FAERS Safety Report 13812324 (Version 4)
Quarter: 2018Q1

REPORT INFORMATION
  Report Type: Report from Study
  Country: US (occurrence: US)
  Receive Date: 20170728
  Receipt Date: 20180125
  Transmission Date: 20180508
  Serious: No
  Sender: FDA-Public Use
  Company Number: US-AMGEN-USASL2017101538

PATIENT
  Age: 76 Year
  Sex: Female

DRUGS (2)
  1. REPATHA [Suspect]
     Active Substance: EVOLOCUMAB
     Indication: HYPERCHOLESTEROLAEMIA
  2. REPATHA [Suspect]
     Active Substance: EVOLOCUMAB
     Indication: CARDIAC FAILURE
     Dosage: 140 MG, Q2WK
     Route: 065

REACTIONS (6)
  - Drug effect decreased [Unknown]
  - Rhinorrhoea [Unknown]
  - Hypertension [Unknown]
  - Confusional state [Recovering/Resolving]
  - Arthritis [Unknown]
  - Headache [Unknown]
